FAERS Safety Report 25753353 (Version 1)
Quarter: 2025Q3

REPORT INFORMATION
  Report Type: Spontaneous
  Country: EU (occurrence: EU)
  Receive Date: 20250903
  Receipt Date: 20250903
  Transmission Date: 20251021
  Serious: Yes (Hospitalization, Other)
  Sender: ACCORD
  Company Number: EU-Accord-502230

PATIENT
  Age: 43 Year
  Sex: Female

DRUGS (1)
  1. MYCOPHENOLATE MOFETIL [Suspect]
     Active Substance: MYCOPHENOLATE MOFETIL
     Indication: Immunosuppressant drug therapy

REACTIONS (3)
  - Dengue fever [Recovered/Resolved]
  - Infection reactivation [Recovered/Resolved]
  - Evans syndrome [Unknown]

NARRATIVE: CASE EVENT DATE: 20200101
